FAERS Safety Report 21792241 (Version 4)
Quarter: 2023Q1

REPORT INFORMATION
  Report Type: Report from Study
  Country: TW (occurrence: None)
  Receive Date: 20221229
  Receipt Date: 20230222
  Transmission Date: 20230417
  Serious: Yes (Hospitalization)
  Sender: FDA-Public Use
  Company Number: TW-ROCHE-3250892

PATIENT
  Age: 81 Year
  Sex: Female
  Weight: 49.7 kg

DRUGS (17)
  1. ATEZOLIZUMAB [Suspect]
     Active Substance: ATEZOLIZUMAB
     Indication: Hepatocellular carcinoma
     Dosage: THE LAST DOSE OF ATEZOLIZUMAB RECEIVED PRIOR TO THE SAE WAS ON 22/DEC/2022
     Route: 041
     Dates: start: 20221201
  2. BEVACIZUMAB [Suspect]
     Active Substance: BEVACIZUMAB
     Indication: Hepatocellular carcinoma
     Dosage: THE LAST DOSE OF BEVACIZUMAB RECEIVED PRIOR TO THE SAE WAS ON 22/DEC/2022
     Route: 042
     Dates: start: 20221201
  3. PROPRANOLOL [Concomitant]
     Active Substance: PROPRANOLOL HYDROCHLORIDE
     Dates: start: 20221124
  4. CEFACLOR [Concomitant]
     Active Substance: CEFACLOR
     Dates: start: 20221201, end: 20221225
  5. AMLODIPINE [Concomitant]
     Active Substance: AMLODIPINE BESYLATE
     Dates: start: 20180626
  6. VALSARTAN [Concomitant]
     Active Substance: VALSARTAN
     Dates: start: 20210828
  7. ALPRAZOLAM [Concomitant]
     Active Substance: ALPRAZOLAM
     Dates: start: 20211023
  8. DIPHENHYDRAMINE [Concomitant]
     Active Substance: DIPHENHYDRAMINE
     Route: 042
  9. DIPHENHYDRAMINE [Concomitant]
     Active Substance: DIPHENHYDRAMINE
     Route: 042
  10. HYDROCORTISONE [Concomitant]
     Active Substance: HYDROCORTISONE
     Route: 042
  11. ALBUTEROL [Concomitant]
     Active Substance: ALBUTEROL
  12. FUROSEMIDE [Concomitant]
     Active Substance: FUROSEMIDE
     Route: 042
     Dates: start: 20221204, end: 20221204
  13. DEXILANT [Concomitant]
     Active Substance: DEXLANSOPRAZOLE
  14. REHISTACAL B6 [Concomitant]
     Dates: start: 20221204, end: 20221204
  15. ALBUTEROL [Concomitant]
     Active Substance: ALBUTEROL
     Dates: start: 20221204, end: 20221204
  16. DIETARY SUPPLEMENT\HERBALS\MILK THISTLE [Concomitant]
     Active Substance: DIETARY SUPPLEMENT\HERBALS\MILK THISTLE
  17. URSODIOL [Concomitant]
     Active Substance: URSODIOL

REACTIONS (2)
  - Portal hypertensive gastropathy [Recovered/Resolved with Sequelae]
  - Hyponatraemia [Recovered/Resolved]

NARRATIVE: CASE EVENT DATE: 20221203
